FAERS Safety Report 9261693 (Version 11)
Quarter: 2013Q3

REPORT INFORMATION
  Report Type: Report from Study
  Country: CA (occurrence: CA)
  Receive Date: 20130429
  Receipt Date: 20130913
  Transmission Date: 20140515
  Serious: Yes (Hospitalization, Disabling, Other)
  Sender: FDA-Public Use
  Company Number: CA-ABBOTT-13P-028-1079885-00

PATIENT
  Age: 60 Year
  Sex: Female
  Weight: 75 kg

DRUGS (33)
  1. HUMIRA [Suspect]
     Indication: CROHN^S DISEASE
     Route: 058
     Dates: start: 20090114, end: 20130424
  2. CYANOCOBALAMIN [Concomitant]
     Indication: VITAMIN B12 DEFICIENCY
     Route: 058
     Dates: start: 1989, end: 20130724
  3. PARACETAMOL [Concomitant]
     Indication: ARTHRALGIA
     Dates: start: 2001
  4. PIOGLITAZONE HYDROCHLORIDE [Concomitant]
     Indication: DIABETES MELLITUS
     Dates: start: 20060201, end: 20130524
  5. PIOGLITAZONE HYDROCHLORIDE [Concomitant]
     Route: 048
     Dates: start: 20130601
  6. ZOPICLONE [Concomitant]
     Indication: SLEEP DISORDER
     Dosage: 7.5 MG
     Dates: start: 20061015, end: 20091024
  7. ZOPICLONE [Concomitant]
     Dosage: 7.5 MG
     Dates: start: 20091025, end: 201110
  8. ZOPICLONE [Concomitant]
     Dosage: 7.5 MG Q HS
     Route: 048
     Dates: start: 20130103, end: 20130830
  9. TILACTASE [Concomitant]
     Indication: LACTOSE INTOLERANCE
     Dates: start: 2006
  10. PARACETAMOL [Concomitant]
     Indication: ARTHRALGIA
     Dates: start: 2006
  11. BENADRYL ALLERGY [Concomitant]
     Indication: HYPERSENSITIVITY
     Dates: start: 200807
  12. DIPHENHYDRAMINE HYDROCHLORIDE [Concomitant]
     Indication: RASH PRURITIC
     Route: 048
     Dates: start: 20090701
  13. CO REPAGLINIDE [Concomitant]
     Indication: DIABETES MELLITUS
     Dates: start: 20130326, end: 20130524
  14. COLESTIPOL HYDROCHLORIDE [Concomitant]
     Indication: DIARRHOEA
     Dates: start: 20041022, end: 20110116
  15. COLESTIPOL HYDROCHLORIDE [Concomitant]
     Dosage: 1-2 TABS
     Dates: start: 20110117
  16. ESOMEPRAZOLE [Concomitant]
     Indication: GASTROOESOPHAGEAL REFLUX DISEASE
     Route: 048
     Dates: start: 20120913, end: 20130416
  17. ESOMEPRAZOLE [Concomitant]
     Route: 048
     Dates: start: 20130423, end: 201306
  18. SALBUTAMOL [Concomitant]
     Indication: CHRONIC OBSTRUCTIVE PULMONARY DISEASE
     Route: 055
     Dates: start: 20121014
  19. ULTRAM [Concomitant]
     Indication: ABDOMINAL PAIN
     Dosage: BID PRN
     Dates: start: 20130307, end: 20130524
  20. ULTRAM [Concomitant]
     Indication: BACK PAIN
  21. SERETIDE [Concomitant]
     Indication: CHRONIC OBSTRUCTIVE PULMONARY DISEASE
     Route: 055
     Dates: start: 20121108
  22. ANUSOL [Concomitant]
     Indication: PROPHYLAXIS
     Route: 054
     Dates: start: 20130308
  23. ANUSOL [Concomitant]
     Indication: ANORECTAL DISCOMFORT
  24. ANUSOL [Concomitant]
     Indication: FAECAL INCONTINENCE
  25. HEMCORT H.C. [Concomitant]
     Indication: PROPHYLAXIS
     Dosage: BID PRN
     Dates: start: 20120913
  26. HEMCORT H.C. [Concomitant]
     Indication: ANORECTAL DISCOMFORT
  27. HEMCORT H.C. [Concomitant]
     Indication: FAECAL INCONTINENCE
  28. DESVENLAFAXINE SUCCINATE [Concomitant]
     Indication: DEPRESSION
     Route: 048
     Dates: start: 20100525
  29. ALTACE [Concomitant]
     Indication: HYPERTENSION
     Dates: start: 20100724, end: 20130524
  30. CLONIDINE [Concomitant]
     Indication: NIGHT SWEATS
     Dosage: 0.025 MG X 2
     Dates: start: 20110615
  31. MULTIVITAMINS [Concomitant]
     Indication: VITAMIN SUPPLEMENTATION
     Route: 048
     Dates: start: 200312, end: 201303
  32. MULTIVITAMINS [Concomitant]
     Route: 048
     Dates: start: 201308
  33. XANAX [Concomitant]
     Indication: ANXIETY
     Route: 048
     Dates: start: 20121108

REACTIONS (3)
  - Ureteric obstruction [Recovered/Resolved]
  - B-cell lymphoma [Not Recovered/Not Resolved]
  - Renal failure acute [Recovered/Resolved]
